FAERS Safety Report 5737719-6 (Version None)
Quarter: 2008Q2

REPORT INFORMATION
  Report Type: 
  Country: None (occurrence: None)
  Receive Date: 20080514
  Receipt Date: 20080508
  Transmission Date: 20081010
  Serious: Yes (Life-Threatening, Other)
  Sender: FDA-Public Use
  Company Number: A0726874A

PATIENT
  Age: 12 Year
  Sex: Male

DRUGS (7)
  1. LAMICTAL [Suspect]
     Indication: BIPOLAR DISORDER
     Route: 048
     Dates: start: 20080101, end: 20080101
  2. COGENTIN [Concomitant]
  3. DEPAKOTE [Concomitant]
  4. PROTONIX [Concomitant]
  5. CONCERTA [Concomitant]
  6. RISPERDAL [Concomitant]
  7. EPIPEN [Concomitant]

REACTIONS (8)
  - ADVERSE DRUG REACTION [None]
  - BODY TEMPERATURE DECREASED [None]
  - DERMATITIS [None]
  - LETHARGY [None]
  - RASH [None]
  - RASH ERYTHEMATOUS [None]
  - STEVENS-JOHNSON SYNDROME [None]
  - VIRAL SKIN INFECTION [None]
